FAERS Safety Report 6494680-7 (Version None)
Quarter: 2009Q4

REPORT INFORMATION
  Report Type: 
  Country: None (occurrence: None)
  Receive Date: 20091214
  Receipt Date: 20090313
  Transmission Date: 20100525
  Serious: Yes (Hospitalization)
  Sender: FDA-Public Use
  Company Number: US-BRISTOL-MYERS SQUIBB COMPANY-14543623

PATIENT

DRUGS (2)
  1. ABILIFY [Suspect]
     Dosage: INITIAL DOSE 1MG.
  2. CLOZARIL [Suspect]
     Indication: PSYCHOTIC DISORDER

REACTIONS (2)
  - AGITATION [None]
  - PSYCHOTIC DISORDER [None]
